FAERS Safety Report 7961697-2 (Version None)
Quarter: 2011Q4

REPORT INFORMATION
  Report Type: 
  Country: None (occurrence: None)
  Receive Date: 20111207
  Receipt Date: 20111128
  Transmission Date: 20120403
  Serious: Yes (Hospitalization, Other)
  Sender: FDA-Public Use
  Company Number: PHHY2011IN104109

PATIENT
  Age: 28 Year
  Sex: Female

DRUGS (1)
  1. AMLODIPINE [Suspect]

REACTIONS (21)
  - FLUID OVERLOAD [None]
  - NON-CARDIOGENIC PULMONARY OEDEMA [None]
  - RESPIRATORY DISTRESS [None]
  - METABOLIC ACIDOSIS [None]
  - HYPOXIA [None]
  - SUICIDE ATTEMPT [None]
  - HYPOTENSION [None]
  - HYPERKALAEMIA [None]
  - PALLOR [None]
  - TACHYPNOEA [None]
  - LETHARGY [None]
  - OLIGURIA [None]
  - DIZZINESS [None]
  - OVERDOSE [None]
  - COLD SWEAT [None]
  - RENAL FAILURE ACUTE [None]
  - LUNG INFILTRATION [None]
  - RALES [None]
  - SINUS TACHYCARDIA [None]
  - ACUTE RESPIRATORY DISTRESS SYNDROME [None]
  - COUGH [None]
